FAERS Safety Report 14893230 (Version 1)
Quarter: 2018Q2

REPORT INFORMATION
  Report Type: Spontaneous
  Country: US (occurrence: US)
  Receive Date: 20180514
  Receipt Date: 20180514
  Transmission Date: 20180711
  Serious: No
  Sender: FDA-Public Use
  Company Number: US-SUNOVION-2018SUN001794

PATIENT
  Sex: Female

DRUGS (2)
  1. ESZOPICLONE. [Suspect]
     Active Substance: ESZOPICLONE
     Dosage: UNK
  2. LUNESTA [Suspect]
     Active Substance: ESZOPICLONE
     Dosage: 3 MG, QD
     Route: 048

REACTIONS (1)
  - Drug hypersensitivity [Unknown]
